FAERS Safety Report 25610495 (Version 1)
Quarter: 2025Q3

REPORT INFORMATION
  Report Type: Spontaneous
  Country: EU (occurrence: EU)
  Receive Date: 20250728
  Receipt Date: 20250728
  Transmission Date: 20251021
  Serious: Yes (Life-Threatening, Hospitalization, Disabling, Other)
  Sender: AMGEN
  Company Number: None

PATIENT
  Age: 9 Decade
  Sex: Male

DRUGS (2)
  1. ADALIMUMAB [Suspect]
     Active Substance: ADALIMUMAB
     Indication: Psoriatic arthropathy
     Route: 058
     Dates: start: 20240229, end: 20240824
  2. METHOTREXATE [Concomitant]
     Active Substance: METHOTREXATE
     Dates: start: 20170310, end: 2024

REACTIONS (4)
  - Pneumonitis [Unknown]
  - Pulmonary fibrosis [Not Recovered/Not Resolved]
  - Dyspnoea [Recovering/Resolving]
  - Interstitial lung disease [Recovering/Resolving]

NARRATIVE: CASE EVENT DATE: 20240801
